FAERS Safety Report 12120818 (Version 1)
Quarter: 2016Q1

REPORT INFORMATION
  Report Type: Spontaneous
  Country: US (occurrence: US)
  Receive Date: 20160226
  Receipt Date: 20160226
  Transmission Date: 20160526
  Serious: No
  Sender: FDA-Public Use
  Company Number: US-ALLERGAN-1312264US

PATIENT
  Age: 64 Year
  Sex: Female

DRUGS (2)
  1. MEDICATION FOR URINATION ISSUE NOS [Concomitant]
     Indication: MICTURITION DISORDER
     Dosage: UNK GTT, UNK
  2. REFRESH OPTIVE [Suspect]
     Active Substance: CARBOXYMETHYLCELLULOSE SODIUM\GLYCERIN
     Indication: DRY EYE
     Dosage: 2 GTT, BID
     Route: 047

REACTIONS (1)
  - Micturition disorder [Recovering/Resolving]
